FAERS Safety Report 5074165-5 (Version None)
Quarter: 2006Q3

REPORT INFORMATION
  Report Type: 
  Country: None (occurrence: None)
  Receive Date: 20060803
  Receipt Date: 20060721
  Transmission Date: 20061208
  Serious: Yes (Hospitalization)
  Sender: FDA-Public Use
  Company Number: 2006EU002159

PATIENT
  Age: 62 Year
  Sex: Male

DRUGS (1)
  1. FK506(TACROLIMUS CAPSULES)(TACROLIMUS) CAPSULE [Suspect]
     Indication: LIVER TRANSPLANT
     Dosage: 2 MG, ORAL
     Route: 048
     Dates: start: 20040725

REACTIONS (2)
  - ANGIOSARCOMA [None]
  - SPINAL DISORDER [None]
